FAERS Safety Report 18267142 (Version 1)
Quarter: 2020Q3

REPORT INFORMATION
  Report Type: Spontaneous
  Country: US (occurrence: US)
  Receive Date: 20200914
  Receipt Date: 20200914
  Transmission Date: 20201103
  Serious: Yes (Disabling)
  Sender: FDA-Public Use
  Company Number: None

PATIENT
  Age: 45 Year
  Sex: Female
  Weight: 84.6 kg

DRUGS (5)
  1. ELIQUIS [Suspect]
     Active Substance: APIXABAN
     Indication: PULMONARY EMBOLISM
     Dosage: ?          QUANTITY:60 TABLET(S);?
     Route: 048
     Dates: start: 20200611, end: 20200912
  2. SINGULAIR [Concomitant]
     Active Substance: MONTELUKAST SODIUM
  3. WIXELA INHUB [Concomitant]
     Active Substance: FLUTICASONE PROPIONATE\SALMETEROL XINAFOATE
  4. ALBUTEROL. [Concomitant]
     Active Substance: ALBUTEROL
  5. ALLEGRA [Concomitant]
     Active Substance: FEXOFENADINE HYDROCHLORIDE

REACTIONS (6)
  - Fatigue [None]
  - Chest pain [None]
  - Weight increased [None]
  - Vaginal haemorrhage [None]
  - Peripheral swelling [None]
  - Dry mouth [None]

NARRATIVE: CASE EVENT DATE: 20200616
